FAERS Safety Report 24587860 (Version 1)
Quarter: 2024Q4

REPORT INFORMATION
  Report Type: Spontaneous
  Country: GB (occurrence: GB)
  Receive Date: 20241107
  Receipt Date: 20241107
  Transmission Date: 20250115
  Serious: Yes (Hospitalization, Other)
  Sender: RANBAXY
  Company Number: GB-MHRA-MIDB-29cec541-db6f-496f-8df7-8d14e00e3587

PATIENT
  Age: 78 Year
  Sex: Male

DRUGS (11)
  1. WARFARIN [Suspect]
     Active Substance: WARFARIN
     Indication: Product used for unknown indication
     Dosage: UNK
     Route: 065
  2. SERTRALINE [Suspect]
     Active Substance: SERTRALINE HYDROCHLORIDE
     Indication: Product used for unknown indication
     Dosage: UNK
     Route: 065
  3. AMLODIPINE [Concomitant]
     Active Substance: AMLODIPINE BESYLATE
     Indication: Product used for unknown indication
     Dosage: 5 MILLIGRAM, DAILY
     Route: 065
  4. CHOLECALCIFEROL [Concomitant]
     Active Substance: CHOLECALCIFEROL
     Indication: Product used for unknown indication
     Dosage: 200 UNIT / CALCIUM CARBONATE 1.25 G CHEWABLE TABLETS ONE TO BE TAKEN TWICE A DAY
     Route: 065
  5. Clinitas Carbomer [Concomitant]
     Indication: Product used for unknown indication
     Dosage: 0.2% EYE GEL APPLY FOUR TIMES A DAY BOTH EYES
     Route: 065
  6. ACETAMINOPHEN [Concomitant]
     Active Substance: ACETAMINOPHEN
     Indication: Product used for unknown indication
     Dosage: 1 TO 2 FOUR TIMES A DAY AS REQUIRED
     Route: 065
  7. LANSOPRAZOLE [Concomitant]
     Active Substance: LANSOPRAZOLE
     Indication: Product used for unknown indication
     Dosage: 30 MILLIGRAM, DAILY
     Route: 065
  8. SCOPOLAMINE [Concomitant]
     Active Substance: SCOPOLAMINE
     Indication: Product used for unknown indication
     Dosage: 1 MG / 72 HOURS TRANSDERMAL PATCHES ONE PATCH EVERY 3 DAYS
     Route: 065
  9. ATORVASTATIN [Concomitant]
     Active Substance: ATORVASTATIN
     Indication: Product used for unknown indication
     Dosage: AT NIGHT
     Route: 065
  10. POLYETHYLENE GLYCOLS [Concomitant]
     Active Substance: POLYETHYLENE GLYCOLS
     Indication: Product used for unknown indication
     Dosage: COMPOUND ORAL POWDER SACHETS NPF SUGAR FREE TAKE 2 BD
     Route: 065
  11. dermol cream [Concomitant]
     Indication: Product used for unknown indication
     Dosage: APPLY TO THE SKIN OR USE AS A SOAP SUBSTITUTE
     Route: 065

REACTIONS (1)
  - Gastrointestinal haemorrhage [Recovered/Resolved]
